FAERS Safety Report 13890843 (Version 1)
Quarter: 2017Q3

REPORT INFORMATION
  Report Type: Spontaneous
  Country: ID (occurrence: ID)
  Receive Date: 20170822
  Receipt Date: 20170822
  Transmission Date: 20171127
  Serious: Yes (Hospitalization)
  Sender: FDA-Public Use
  Company Number: ID-SHENZHEN TECHDOW PHARMACEUTICAL CO. LTD-ID-2017TEC0000045

PATIENT
  Age: 68 Year
  Sex: Male

DRUGS (2)
  1. HEPARIN SODIUM INJECTION USP, PRESERVATIVE FREE [Suspect]
     Active Substance: HEPARIN SODIUM
     Dosage: UNK
  2. HEPARIN SODIUM INJECTION USP, PRESERVATIVE FREE [Suspect]
     Active Substance: HEPARIN SODIUM
     Indication: PERCUTANEOUS CORONARY INTERVENTION
     Dosage: 5000 IU, BOLUS
     Route: 042

REACTIONS (5)
  - Cardiac failure [Recovered/Resolved]
  - Haematoma [Recovering/Resolving]
  - Gastrointestinal haemorrhage [Recovering/Resolving]
  - Heparin-induced thrombocytopenia [Recovering/Resolving]
  - Hypovolaemic shock [Recovered/Resolved]
